FAERS Safety Report 8224497 (Version 3)
Quarter: 2013Q1

REPORT INFORMATION
  Report Type: Spontaneous
  Country: US (occurrence: US)
  Receive Date: 20111103
  Receipt Date: 20130227
  Transmission Date: 20140127
  Serious: No
  Sender: FDA-Public Use
  Company Number: US-BIOGENIDEC-2011BI041329

PATIENT
  Age: 58 None
  Sex: Male

DRUGS (6)
  1. TYSABRI [Suspect]
     Indication: MULTIPLE SCLEROSIS
     Route: 042
     Dates: start: 20090929
  2. EPIDURAL STEROID INJECTION [Concomitant]
     Indication: BACK PAIN
     Dates: start: 201004
  3. EPIDURAL STEROID INJECTION [Concomitant]
     Indication: BACK PAIN
     Dates: start: 201005
  4. EPIDURAL STEROID INJECTION [Concomitant]
     Indication: BACK PAIN
     Dates: start: 201012
  5. EPIDURAL STEROID INJECTION [Concomitant]
     Indication: BACK PAIN
     Dates: start: 201101
  6. XANAX [Concomitant]
     Indication: POST-TRAUMATIC STRESS DISORDER

REACTIONS (22)
  - Diabetes mellitus [Not Recovered/Not Resolved]
  - Cataract [Recovered/Resolved]
  - Hair growth abnormal [Not Recovered/Not Resolved]
  - Confusional state [Recovered/Resolved]
  - Post-traumatic stress disorder [Recovered/Resolved]
  - Dehydration [Recovered/Resolved]
  - Intervertebral disc degeneration [Not Recovered/Not Resolved]
  - Facet joint syndrome [Not Recovered/Not Resolved]
  - Contusion [Unknown]
  - Emotional distress [Unknown]
  - Poor venous access [Unknown]
  - Lumbar spinal stenosis [Not Recovered/Not Resolved]
  - Panic attack [Recovered/Resolved]
  - Diarrhoea [Recovered/Resolved]
  - Spinal pain [Recovered/Resolved]
  - Infusion site bruising [Recovered/Resolved]
  - Nasopharyngitis [Recovered/Resolved]
  - Malaise [Recovered/Resolved]
  - Headache [Recovered/Resolved]
  - Constipation [Recovered/Resolved]
  - Fatigue [Unknown]
  - Hypotension [Unknown]
